FAERS Safety Report 10643141 (Version 2)
Quarter: 2015Q1

REPORT INFORMATION
  Report Type: Report from Study
  Country: US (occurrence: US)
  Receive Date: 20141210
  Receipt Date: 20150109
  Transmission Date: 20150720
  Serious: Yes (Hospitalization)
  Sender: FDA-Public Use
  Company Number: US-JNJFOC-20141204462

PATIENT
  Age: 85 Year
  Sex: Male
  Weight: 107 kg

DRUGS (6)
  1. CARVEDILOL. [Concomitant]
     Active Substance: CARVEDILOL
  2. INSULIN [Concomitant]
     Active Substance: INSULIN NOS
  3. COUMADIN [Concomitant]
     Active Substance: WARFARIN SODIUM
  4. MECLIZINE [Concomitant]
     Active Substance: MECLIZINE\MECLIZINE HYDROCHLORIDE
  5. IMBRUVICA [Suspect]
     Active Substance: IBRUTINIB
     Indication: CHRONIC LYMPHOCYTIC LEUKAEMIA
     Route: 048
     Dates: start: 20140718, end: 20141202
  6. ACYCLOVIR. [Concomitant]
     Active Substance: ACYCLOVIR

REACTIONS (8)
  - Fatigue [Unknown]
  - Haemoglobin decreased [Unknown]
  - Wheezing [Unknown]
  - Ascites [Unknown]
  - Oedema peripheral [Unknown]
  - Gastrointestinal haemorrhage [Unknown]
  - Lymphadenopathy [Unknown]
  - Gastritis [Unknown]

NARRATIVE: CASE EVENT DATE: 201412
